FAERS Safety Report 19620135 (Version 2)
Quarter: 2021Q3

REPORT INFORMATION
  Report Type: Other
  Country: US (occurrence: US)
  Receive Date: 20210728
  Receipt Date: 20210810
  Transmission Date: 20211014
  Serious: Yes (Other)
  Sender: FDA-Public Use
  Company Number: US-DEXPHARM-20211129

PATIENT
  Age: 30 Year
  Sex: Male

DRUGS (5)
  1. VIGABATRIN. [Suspect]
     Active Substance: VIGABATRIN
  2. RISPERIDONE. [Suspect]
     Active Substance: RISPERIDONE
  3. AFINITOR [Suspect]
     Active Substance: EVEROLIMUS
  4. VALPROIC ACID. [Suspect]
     Active Substance: VALPROIC ACID
  5. OXCARBAZEPINE XR [Suspect]
     Active Substance: OXCARBAZEPINE

REACTIONS (1)
  - Weight increased [Unknown]
